FAERS Safety Report 11291365 (Version 1)
Quarter: 2015Q3

REPORT INFORMATION
  Report Type: Spontaneous
  Country: GB (occurrence: GB)
  Receive Date: 20150722
  Receipt Date: 20150722
  Transmission Date: 20151125
  Serious: Yes (Disabling)
  Sender: FDA-Public Use
  Company Number: GB-TEVA-578504ACC

PATIENT
  Age: 36 Year
  Sex: Female
  Weight: 58.51 kg

DRUGS (1)
  1. SERTRALINE [Suspect]
     Active Substance: SERTRALINE HYDROCHLORIDE
     Indication: PANIC ATTACK
     Route: 048
     Dates: start: 20130101, end: 20130119

REACTIONS (10)
  - Disorientation [Recovered/Resolved with Sequelae]
  - Panic attack [Not Recovered/Not Resolved]
  - Decreased appetite [Recovered/Resolved]
  - Suicidal ideation [Recovering/Resolving]
  - Amnesia [Not Recovered/Not Resolved]
  - Anxiety [Not Recovered/Not Resolved]
  - Depression [Recovering/Resolving]
  - Dysstasia [Recovered/Resolved]
  - Psychotic disorder [Recovered/Resolved]
  - Diarrhoea [Not Recovered/Not Resolved]

NARRATIVE: CASE EVENT DATE: 20130101
